FAERS Safety Report 5742144-8 (Version None)
Quarter: 2008Q2

REPORT INFORMATION
  Report Type: 
  Country: None (occurrence: None)
  Receive Date: 20080515
  Receipt Date: 20080507
  Transmission Date: 20081010
  Serious: Yes (Other)
  Sender: FDA-Public Use
  Company Number: 2008MB000054

PATIENT
  Sex: Female

DRUGS (4)
  1. KEFLEX [Suspect]
     Indication: DRUG USE FOR UNKNOWN INDICATION
     Dosage: HS
     Dates: start: 20080401, end: 20080422
  2. KEFLEX [Suspect]
     Indication: DRUG USE FOR UNKNOWN INDICATION
     Dosage: HS
     Dates: start: 20080429
  3. VALTREX [Suspect]
     Indication: DRUG USE FOR UNKNOWN INDICATION
     Dosage: HS; PO
     Route: 048
     Dates: start: 20080401, end: 20080422
  4. VALTREX [Suspect]
     Indication: DRUG USE FOR UNKNOWN INDICATION
     Dosage: HS; PO
     Route: 048
     Dates: start: 20080429

REACTIONS (3)
  - DIARRHOEA [None]
  - SHOCK [None]
  - VOMITING [None]
